FAERS Safety Report 12244610 (Version 2)
Quarter: 2017Q4

REPORT INFORMATION
  Report Type: Spontaneous
  Country: US (occurrence: US)
  Receive Date: 20160407
  Receipt Date: 20171030
  Transmission Date: 20180320
  Serious: Yes (Hospitalization)
  Sender: FDA-Public Use
  Company Number: US-ACCORD-039354

PATIENT
  Age: 16 Year
  Sex: Male

DRUGS (2)
  1. ALPRAZOLAM. [Suspect]
     Active Substance: ALPRAZOLAM
     Indication: PRODUCT USED FOR UNKNOWN INDICATION
     Dosage: RECEIVED FOUR TABLET AT SCHOOL
     Route: 048
  2. QUETIAPINE. [Suspect]
     Active Substance: QUETIAPINE
     Indication: SLEEP DISORDER
     Dosage: STARTED WITH 50 MG THEN INCREASED TO 400 MG THRICE DAILY.

REACTIONS (4)
  - Somnolence [Recovering/Resolving]
  - Palpitations [Unknown]
  - Loss of consciousness [Unknown]
  - Drug abuse [Unknown]
